FAERS Safety Report 7145705-7 (Version None)
Quarter: 2010Q4

REPORT INFORMATION
  Report Type: 
  Country: None (occurrence: None)
  Receive Date: 20101208
  Receipt Date: 20100322
  Transmission Date: 20110411
  Serious: No
  Sender: FDA-Public Use
  Company Number: US-ABBOTT-10P-163-0634272-00

PATIENT
  Age: 55 Year
  Sex: Female

DRUGS (2)
  1. ERYTHROMYCIN BASE [Suspect]
     Indication: SINUS DISORDER
     Dosage: UNKNOWN DOSE
  2. ERYTHROMYCIN BASE [Suspect]
     Indication: ANTIBIOTIC PROPHYLAXIS

REACTIONS (2)
  - ACNE [None]
  - SWOLLEN TONGUE [None]
